FAERS Safety Report 21759769 (Version 4)
Quarter: 2023Q1

REPORT INFORMATION
  Report Type: Report from Study
  Country: US (occurrence: US)
  Receive Date: 20221221
  Receipt Date: 20230325
  Transmission Date: 20230417
  Serious: No
  Sender: FDA-Public Use
  Company Number: US-002147023-NVSC2022US295121

PATIENT
  Sex: Male

DRUGS (1)
  1. ENTRESTO [Suspect]
     Active Substance: SACUBITRIL\VALSARTAN
     Indication: Product used for unknown indication
     Dosage: 1 DOSAGE FORM, BID (24/26 MG)
     Route: 065

REACTIONS (6)
  - Somnolence [Unknown]
  - Dehydration [Unknown]
  - Fatigue [Recovering/Resolving]
  - Asthenia [Unknown]
  - Weight increased [Not Recovered/Not Resolved]
  - Heart rate decreased [Unknown]
